FAERS Safety Report 14558196 (Version 1)
Quarter: 2018Q1

REPORT INFORMATION
  Report Type: Spontaneous
  Country: AT (occurrence: AT)
  Receive Date: 20180221
  Receipt Date: 20180221
  Transmission Date: 20180509
  Serious: Yes (Hospitalization)
  Sender: FDA-Public Use
  Company Number: PHHY2018AT028407

PATIENT
  Age: 81 Year
  Sex: Female

DRUGS (6)
  1. APREDNISLON [Suspect]
     Active Substance: PREDNISOLONE
     Indication: MYOSITIS
  2. APREDNISLON [Suspect]
     Active Substance: PREDNISOLONE
     Indication: RHEUMATOID ARTHRITIS
     Dosage: 15 MG, BID
     Route: 048
  3. METHOTREXAT [Suspect]
     Active Substance: METHOTREXATE
     Indication: MYOSITIS
     Dosage: 15MG/WOCHE
     Route: 058
  4. METHOTREXAT [Suspect]
     Active Substance: METHOTREXATE
     Indication: RHEUMATOID ARTHRITIS
  5. SANDIMMUN [Suspect]
     Active Substance: CYCLOSPORINE
     Indication: MYOSITIS
  6. SANDIMMUN [Suspect]
     Active Substance: CYCLOSPORINE
     Indication: RHEUMATOID ARTHRITIS
     Dosage: 50 MG, BID
     Route: 048

REACTIONS (1)
  - Bartholin^s abscess [Recovered/Resolved]

NARRATIVE: CASE EVENT DATE: 20171206
